FAERS Safety Report 5504199-5 (Version None)
Quarter: 2007Q4

REPORT INFORMATION
  Report Type: 
  Country: None (occurrence: None)
  Receive Date: 20071101
  Receipt Date: 20071026
  Transmission Date: 20080405
  Serious: Yes (Hospitalization)
  Sender: FDA-Public Use
  Company Number: B0491768A

PATIENT
  Age: 75 Year
  Sex: Female

DRUGS (15)
  1. VALTREX [Suspect]
     Indication: HERPES ZOSTER
     Dosage: 500MG PER DAY
     Route: 048
     Dates: start: 20071015, end: 20071015
  2. EVAMYL [Concomitant]
     Indication: INSOMNIA
     Dosage: 1.5MG PER DAY
     Route: 048
  3. LENDORMIN [Concomitant]
     Indication: INSOMNIA
     Dosage: .25MG PER DAY
     Route: 048
  4. U PAN [Concomitant]
     Indication: INSOMNIA
     Dosage: 1MG PER DAY
     Route: 048
  5. THYRADIN [Concomitant]
     Indication: HYPOTHYROIDISM
     Dosage: 100MCG PER DAY
     Route: 048
  6. ALFAROL [Concomitant]
     Indication: OSTEOPOROSIS
     Dosage: .25MG PER DAY
     Route: 048
  7. ASPIRIN [Concomitant]
     Indication: CEREBRAL INFARCTION
     Dosage: 100MG PER DAY
     Route: 048
  8. PANTOSIN [Concomitant]
     Indication: CONSTIPATION
     Dosage: 600MG PER DAY
     Route: 048
  9. MAGLAX [Concomitant]
     Indication: CONSTIPATION
     Dosage: 750MG PER DAY
     Route: 048
  10. ALLEGRA [Concomitant]
     Indication: PRURITUS
     Dosage: 120MG PER DAY
     Route: 048
  11. NORVASK [Concomitant]
     Indication: HYPERTENSION
     Dosage: 5MG PER DAY
     Route: 048
  12. FUROSEMIDE [Concomitant]
     Indication: HYPERTENSION
     Dosage: 80MG PER DAY
     Route: 048
  13. TANATRIL [Concomitant]
     Indication: GASTRIC ULCER
     Dosage: 10MG PER DAY
     Route: 048
  14. METHYCOBAL [Concomitant]
     Indication: NEUROPATHY PERIPHERAL
     Dosage: 1.5MG PER DAY
     Route: 048
  15. OPALMON [Concomitant]
     Indication: ARTERIOSCLEROSIS OBLITERANS
     Dosage: 15MCG PER DAY
     Route: 048

REACTIONS (4)
  - DIZZINESS [None]
  - FEELING ABNORMAL [None]
  - GAIT DISTURBANCE [None]
  - HYPOAESTHESIA [None]
